FAERS Safety Report 7387888-X (Version None)
Quarter: 2011Q1

REPORT INFORMATION
  Report Type: 
  Country: None (occurrence: None)
  Receive Date: 20110331
  Receipt Date: 20110317
  Transmission Date: 20110831
  Serious: Yes (Other)
  Sender: FDA-Public Use
  Company Number: GB-MYLANLABS-2011S1005829

PATIENT
  Age: 50 Year
  Sex: Male

DRUGS (1)
  1. METFORMIN HCL [Suspect]
     Indication: TYPE 2 DIABETES MELLITUS

REACTIONS (4)
  - LATENT AUTOIMMUNE DIABETES IN ADULTS [None]
  - GLYCOSYLATED HAEMOGLOBIN INCREASED [None]
  - FEELING ABNORMAL [None]
  - FATIGUE [None]
